FAERS Safety Report 5296887-3 (Version None)
Quarter: 2007Q2

REPORT INFORMATION
  Report Type: 
  Country: None (occurrence: None)
  Receive Date: 20070413
  Receipt Date: 20070403
  Transmission Date: 20071010
  Serious: Yes (Life-Threatening)
  Sender: FDA-Public Use
  Company Number: FR-PFIZER INC-2007028370

PATIENT
  Sex: Female

DRUGS (7)
  1. ATARAX [Suspect]
     Dosage: DAILY DOSE:25MG
     Route: 048
     Dates: start: 20060814, end: 20061121
  2. SEROPRAM [Suspect]
     Dosage: DAILY DOSE:40MG
     Route: 048
     Dates: start: 20060704, end: 20061121
  3. ZYPREXA [Suspect]
     Dosage: DAILY DOSE:7.5MG
     Route: 048
  4. ZYPREXA [Suspect]
     Dates: start: 20060814, end: 20061121
  5. LEXOMIL [Suspect]
     Route: 048
  6. DEROXAT [Suspect]
     Dosage: DAILY DOSE:40MG
     Route: 048
  7. LARGACTIL [Concomitant]
     Dates: start: 20060704, end: 20060814

REACTIONS (2)
  - ABORTION SPONTANEOUS [None]
  - DRUG EXPOSURE DURING PREGNANCY [None]
